FAERS Safety Report 5731594-1 (Version None)
Quarter: 2008Q2

REPORT INFORMATION
  Report Type: 
  Country: None (occurrence: None)
  Receive Date: 20080506
  Receipt Date: 20080424
  Transmission Date: 20081010
  Serious: Yes (Death, Hospitalization)
  Sender: FDA-Public Use
  Company Number: 230596K07USA

PATIENT
  Age: 50 Year
  Sex: Female

DRUGS (2)
  1. REBIF [Suspect]
     Indication: MULTIPLE SCLEROSIS
     Dosage: 44 MCG, 3 IN 1 WEEKS, SUBCUTANEOUS
     Route: 058
     Dates: start: 20060424, end: 20070101
  2. INSULIN (INSULIN) [Concomitant]

REACTIONS (4)
  - COLON CANCER [None]
  - DISEASE RECURRENCE [None]
  - GALLBLADDER DISORDER [None]
  - METASTASES TO LIVER [None]
